FAERS Safety Report 4455949-0 (Version None)
Quarter: 2004Q3

REPORT INFORMATION
  Report Type: 
  Country: None (occurrence: None)
  Receive Date: 20040922
  Receipt Date: 20040910
  Transmission Date: 20050211
  Serious: Yes (Hospitalization)
  Sender: FDA-Public Use
  Company Number: DEPFP-C-20040026

PATIENT
  Age: 56 Year
  Sex: Male

DRUGS (7)
  1. NAVELBINE [Suspect]
     Indication: NON-SMALL CELL LUNG CANCER
     Dosage: 45MG CYCLIC
     Route: 042
     Dates: start: 20031101
  2. ESOMEPRAZOLE [Concomitant]
  3. AMPHOTERICIN B [Concomitant]
  4. FENTANYL [Concomitant]
  5. MACROGOL [Concomitant]
  6. ACETYLCYSTEINE [Concomitant]
  7. ONDANSETRON [Concomitant]

REACTIONS (4)
  - CHILLS [None]
  - PNEUMONIA [None]
  - PYREXIA [None]
  - SINUSITIS [None]
